FAERS Safety Report 6210604-1 (Version None)
Quarter: 2009Q2

REPORT INFORMATION
  Report Type: 
  Country: None (occurrence: None)
  Receive Date: 20090601
  Receipt Date: 20090522
  Transmission Date: 20091009
  Serious: Yes (Other)
  Sender: FDA-Public Use
  Company Number: B0576507A

PATIENT
  Sex: Male

DRUGS (2)
  1. REQUIP [Suspect]
     Indication: PARKINSONISM
     Route: 065
     Dates: start: 20090508, end: 20090508
  2. SINEMET [Suspect]
     Indication: PARKINSONISM
     Route: 065
     Dates: start: 20090508, end: 20090508

REACTIONS (4)
  - ACCIDENTAL OVERDOSE [None]
  - FALL [None]
  - LOSS OF CONSCIOUSNESS [None]
  - SYNCOPE [None]
